FAERS Safety Report 8041431-0 (Version None)
Quarter: 2012Q1

REPORT INFORMATION
  Report Type: 
  Country: None (occurrence: None)
  Receive Date: 20120112
  Receipt Date: 20120106
  Transmission Date: 20120608
  Serious: Yes (Death, Life-Threatening, Hospitalization)
  Sender: FDA-Public Use
  Company Number: FR-PFIZER INC-2012004089

PATIENT
  Age: 44 Year
  Sex: Female

DRUGS (5)
  1. CANCIDAS [Concomitant]
     Indication: BRONCHOPULMONARY ASPERGILLOSIS
     Dosage: UNK
     Route: 042
     Dates: end: 20111007
  2. ZYVOX [Concomitant]
     Indication: LUNG DISORDER
     Dosage: UNK
     Route: 048
     Dates: start: 20111007
  3. VFEND [Suspect]
     Indication: BRONCHOPULMONARY ASPERGILLOSIS
     Dosage: UNK
     Route: 048
     Dates: start: 20111007, end: 20111009
  4. PIPERACILLIN AND TAZOBACTAM [Concomitant]
     Indication: RESPIRATORY DISTRESS
     Route: 042
  5. CIPROFLOXACIN [Concomitant]
     Indication: RESPIRATORY DISTRESS
     Route: 042

REACTIONS (1)
  - RENAL FAILURE [None]
